FAERS Safety Report 9913143 (Version 1)
Quarter: 2014Q1

REPORT INFORMATION
  Report Type: Spontaneous
  Country: US (occurrence: None)
  Receive Date: 20140214
  Receipt Date: 20140214
  Transmission Date: 20141002
  Serious: Yes (Hospitalization)
  Sender: FDA-Public Use
  Company Number: 2180091

PATIENT
  Age: 16 Year
  Sex: Male

DRUGS (6)
  1. CYTARABINE [Suspect]
     Indication: ACUTE MYELOID LEUKAEMIA
     Dosage: NOT REPORTED, UNKNOWN, UNKNOWN
  2. PIPERACILLIN AND TAZOBACTAM [Suspect]
     Indication: FEBRILE NEUTROPENIA
     Dosage: NOT REPORTED, UNKNOWN, UNKNOWN
  3. VANCOMYCIN HYDROCHLORIDE [Suspect]
     Indication: FEBRILE NEUTROPENIA
     Dosage: NOT REPORTED, UNKNOWN, UNKNOWN
  4. ETOPOSIDE [Suspect]
     Indication: ACUTE MYELOID LEUKAEMIA
     Dosage: NOT REPORTED, UNKNOWN, UNKNOWN
  5. DAUNORUBICIN [Suspect]
     Indication: ACUTE MYELOID LEUKAEMIA
     Dosage: NOT REPORTED, UNKNOWN, UNKNOWN
  6. VORICONAZOLE [Suspect]
     Indication: FEBRILE NEUTROPENIA
     Dosage: NOT REPORTED, UNKNOWN, UNKNOWN

REACTIONS (10)
  - Renal failure acute [None]
  - Drug eruption [None]
  - Petechiae [None]
  - Vomiting [None]
  - Staphylococcal infection [None]
  - Blood culture positive [None]
  - Hypotension [None]
  - Kidney enlargement [None]
  - Haemodialysis [None]
  - Tubulointerstitial nephritis [None]
